FAERS Safety Report 16528589 (Version 1)
Quarter: 2019Q3

REPORT INFORMATION
  Report Type: Spontaneous
  Country: US (occurrence: US)
  Receive Date: 20190703
  Receipt Date: 20190703
  Transmission Date: 20191004
  Serious: Yes (Other)
  Sender: FDA-Public Use
  Company Number: PHHY2019US148646

PATIENT
  Age: 38 Year
  Sex: Male

DRUGS (1)
  1. AZITHROMYCIN ANHYDROUS. [Suspect]
     Active Substance: AZITHROMYCIN ANHYDROUS
     Indication: UPPER RESPIRATORY TRACT INFECTION
     Route: 065

REACTIONS (14)
  - Skin exfoliation [Unknown]
  - Acute generalised exanthematous pustulosis [Recovering/Resolving]
  - Pruritus [Unknown]
  - Erythema [Recovering/Resolving]
  - Rash morbilliform [Unknown]
  - Oedema peripheral [Unknown]
  - Rash pustular [Unknown]
  - Eosinophilia [Unknown]
  - Weight increased [Unknown]
  - Leukocytosis [Unknown]
  - Chills [Unknown]
  - Rash [Recovered/Resolved]
  - Neutrophilia [Unknown]
  - Product use in unapproved indication [Unknown]
